FAERS Safety Report 11631296 (Version 1)
Quarter: 2015Q4

REPORT INFORMATION
  Report Type: Spontaneous
  Country: US (occurrence: US)
  Receive Date: 20151014
  Receipt Date: 20151014
  Transmission Date: 20160304
  Serious: No
  Sender: FDA-Public Use
  Company Number: US-009507513-1510USA004999

PATIENT
  Age: 24 Year
  Sex: Female
  Weight: 97.52 kg

DRUGS (1)
  1. NEXPLANON [Suspect]
     Active Substance: ETONOGESTREL
     Indication: CONTRACEPTION
     Dosage: UNK, 3 YEARS
     Route: 059
     Dates: start: 20150916

REACTIONS (3)
  - Implant site infection [Unknown]
  - Implant site bruising [Recovered/Resolved]
  - Menorrhagia [Unknown]

NARRATIVE: CASE EVENT DATE: 2015
